FAERS Safety Report 6083800-4 (Version None)
Quarter: 2009Q1

REPORT INFORMATION
  Report Type: 
  Country: None (occurrence: None)
  Receive Date: 20090217
  Receipt Date: 20090209
  Transmission Date: 20090719
  Serious: Yes (Other)
  Sender: FDA-Public Use
  Company Number: 171962

PATIENT
  Age: 70 Year
  Sex: Male

DRUGS (5)
  1. HEPARIN SODIUM [Suspect]
     Indication: ANTICOAGULANT THERAPY
  2. EPTIFIBATIDE [Concomitant]
  3. CLOPIDOGREL [Concomitant]
  4. ASPIRIN [Concomitant]
  5. NITROGLYCERIN [Concomitant]

REACTIONS (13)
  - CATHETER THROMBOSIS [None]
  - CHEST X-RAY ABNORMAL [None]
  - DISSEMINATED INTRAVASCULAR COAGULATION [None]
  - ELECTROCARDIOGRAM ABNORMAL [None]
  - HEPARIN-INDUCED THROMBOCYTOPENIA [None]
  - HYPOXIA [None]
  - PULMONARY EMBOLISM [None]
  - PYREXIA [None]
  - RESPIRATORY DISTRESS [None]
  - TACHYCARDIA [None]
  - THROMBOSIS [None]
  - TROPONIN INCREASED [None]
  - VENTRICULAR EXTRASYSTOLES [None]
